FAERS Safety Report 4359038-5 (Version None)
Quarter: 2004Q2

REPORT INFORMATION
  Report Type: 
  Country: None (occurrence: None)
  Receive Date: 20040517
  Receipt Date: 20040505
  Transmission Date: 20050107
  Serious: Yes (Other)
  Sender: FDA-Public Use
  Company Number: BE-GLAXOSMITHKLINE-B0332001A

PATIENT
  Sex: Female

DRUGS (2)
  1. AUGMENTIN [Suspect]
     Route: 065
  2. CLAMOXYL [Concomitant]

REACTIONS (5)
  - BODY TEMPERATURE INCREASED [None]
  - ERYTHEMA MULTIFORME [None]
  - HYPOTENSION [None]
  - PRURITUS [None]
  - URTICARIA [None]
